FAERS Safety Report 9570966 (Version 2)
Quarter: 2013Q4

REPORT INFORMATION
  Report Type: Spontaneous
  Country: JP (occurrence: JP)
  Receive Date: 20131001
  Receipt Date: 20131022
  Transmission Date: 20140711
  Serious: Yes (Life-Threatening, Hospitalization)
  Sender: FDA-Public Use
  Company Number: JP-JNJFOC-20130917368

PATIENT
  Age: 86 Year
  Sex: Female
  Weight: 42 kg

DRUGS (7)
  1. GALANTAMINE HBR [Suspect]
     Indication: DEMENTIA ALZHEIMER^S TYPE
     Route: 048
     Dates: start: 20130911, end: 20130927
  2. LORELCO [Concomitant]
     Route: 048
  3. BLOPRESS [Concomitant]
     Route: 048
  4. EPADEL [Concomitant]
     Route: 048
  5. MAGMITT [Concomitant]
     Route: 048
  6. MUCODYNE [Concomitant]
     Route: 048
  7. NICERGOLINE [Concomitant]
     Route: 048

REACTIONS (1)
  - Stevens-Johnson syndrome [Recovering/Resolving]
